FAERS Safety Report 11273546 (Version 1)
Quarter: 2015Q3

REPORT INFORMATION
  Report Type: Spontaneous
  Country: US (occurrence: US)
  Receive Date: 20150715
  Receipt Date: 20150715
  Transmission Date: 20151125
  Serious: Yes (Hospitalization, Other)
  Sender: FDA-Public Use
  Company Number: US-GE HEALTHCARE MEDICAL DIAGNOSTICS-OSCN-PR-1507L-0154

PATIENT
  Age: 67 Year
  Sex: Female

DRUGS (2)
  1. OMNISCAN [Suspect]
     Active Substance: GADODIAMIDE
     Indication: IMAGING PROCEDURE
     Route: 037
  2. TRIAMCINOLONE [Suspect]
     Active Substance: TRIAMCINOLONE
     Indication: BACK PAIN
     Route: 037

REACTIONS (3)
  - False positive investigation result [Recovered/Resolved]
  - Encephalopathy [Recovered/Resolved]
  - Incorrect route of drug administration [Recovered/Resolved]
